FAERS Safety Report 15828380 (Version 1)
Quarter: 2019Q1

REPORT INFORMATION
  Report Type: Spontaneous
  Country: CN (occurrence: CN)
  Receive Date: 20190115
  Receipt Date: 20190115
  Transmission Date: 20190417
  Serious: Yes (Other)
  Sender: FDA-Public Use
  Company Number: CN-GEHC-2019CSU000180

PATIENT

DRUGS (12)
  1. VISIPAQUE [Suspect]
     Active Substance: IODIXANOL
     Indication: ANGIOGRAM
     Dosage: 200 ML, SINGLE
     Route: 042
  2. VISIPAQUE [Suspect]
     Active Substance: IODIXANOL
     Indication: PERCUTANEOUS CORONARY INTERVENTION
  3. INSULIN ASPART [Concomitant]
     Active Substance: INSULIN ASPART
     Indication: TYPE 2 DIABETES MELLITUS
     Dosage: 30 INJECTIONS
  4. ROSUVASTATIN. [Concomitant]
     Active Substance: ROSUVASTATIN
     Indication: HYPERLIPIDAEMIA
     Dosage: 10 MG, QD
     Route: 048
  5. NITROGLYCERIN. [Concomitant]
     Active Substance: NITROGLYCERIN
  6. VISIPAQUE [Suspect]
     Active Substance: IODIXANOL
     Indication: CORONARY ARTERY DISEASE
  7. VOGLIBOSE [Concomitant]
     Active Substance: VOGLIBOSE
     Indication: TYPE 2 DIABETES MELLITUS
     Dosage: 0.2 G, BID
  8. VISIPAQUE [Suspect]
     Active Substance: IODIXANOL
     Indication: ARRHYTHMIA
  9. TICAGRELOR. [Concomitant]
     Active Substance: TICAGRELOR
     Dosage: 90 MG, QD
     Route: 048
  10. VISIPAQUE [Suspect]
     Active Substance: IODIXANOL
     Indication: ACUTE CORONARY SYNDROME
  11. VISIPAQUE [Suspect]
     Active Substance: IODIXANOL
     Indication: GASTROINTESTINAL DISORDER
  12. BENAZEPRIL HYDROCHLORIDE. [Concomitant]
     Active Substance: BENAZEPRIL HYDROCHLORIDE
     Indication: HYPERTENSION
     Dosage: 10 MG, QD
     Route: 048

REACTIONS (3)
  - Discomfort [Recovered/Resolved]
  - Irritability [Recovered/Resolved]
  - Anaphylactic reaction [Recovered/Resolved]
